FAERS Safety Report 11046919 (Version 1)
Quarter: 2015Q2

REPORT INFORMATION
  Report Type: Spontaneous
  Country: BR (occurrence: BR)
  Receive Date: 20150420
  Receipt Date: 20150420
  Transmission Date: 20150821
  Serious: Yes (Death, Other)
  Sender: FDA-Public Use
  Company Number: BR-JNJFOC-20150409667

PATIENT
  Age: 30 Year
  Sex: Male

DRUGS (1)
  1. CONCERTA [Suspect]
     Active Substance: METHYLPHENIDATE HYDROCHLORIDE
     Indication: PSYCHOMOTOR HYPERACTIVITY
     Route: 048
     Dates: start: 2014

REACTIONS (5)
  - Hallucination, auditory [Unknown]
  - Abnormal behaviour [Unknown]
  - Hallucination, visual [Unknown]
  - Death [Fatal]
  - Aggression [Unknown]
